APPROVED DRUG PRODUCT: ANZUPGO
Active Ingredient: DELGOCITINIB
Strength: 2%
Dosage Form/Route: CREAM;TOPICAL
Application: N219155 | Product #001
Applicant: LEO PHARMA AS
Approved: Jul 23, 2025 | RLD: Yes | RS: Yes | Type: RX

PATENTS:
Patent 8609647 | Expires: Sep 19, 2031

EXCLUSIVITY:
Code: NCE | Date: Jul 23, 2030